FAERS Safety Report 19487988 (Version 1)
Quarter: 2021Q3

REPORT INFORMATION
  Report Type: Spontaneous
  Country: US (occurrence: US)
  Receive Date: 20210702
  Receipt Date: 20210702
  Transmission Date: 20211014
  Serious: Yes (Other)
  Sender: FDA-Public Use
  Company Number: US-PFIZER INC-2021748847

PATIENT
  Age: 77 Year
  Sex: Female

DRUGS (2)
  1. REMERON RD [Suspect]
     Active Substance: MIRTAZAPINE
     Dosage: UNK
  2. PRISTIQ EXTENDED?RELEASE [Suspect]
     Active Substance: DESVENLAFAXINE SUCCINATE
     Dosage: 50 MG

REACTIONS (6)
  - Product supply issue [Unknown]
  - Product dose omission issue [Unknown]
  - Suicidal ideation [Unknown]
  - Drug dependence [Unknown]
  - Inappropriate schedule of product discontinuation [Unknown]
  - Drug withdrawal syndrome [Unknown]
